FAERS Safety Report 18655583 (Version 1)
Quarter: 2020Q4

REPORT INFORMATION
  Report Type: Spontaneous
  Country: US (occurrence: US)
  Receive Date: 20201223
  Receipt Date: 20201223
  Transmission Date: 20210114
  Serious: Yes (Hospitalization, Other)
  Sender: FDA-Public Use
  Company Number: US-JNJFOC-20201230052

PATIENT
  Age: 77 Year
  Sex: Female
  Weight: 40.8 kg

DRUGS (20)
  1. FIRDAPSE [Suspect]
     Active Substance: AMIFAMPRIDINE PHOSPHATE
     Route: 048
  2. VORICONAZOLE. [Suspect]
     Active Substance: VORICONAZOLE
     Indication: PRODUCT USED FOR UNKNOWN INDICATION
     Route: 065
  3. BIOTENE [FLUORINE;XYLITOL] [Concomitant]
     Active Substance: SODIUM FLUORIDE\SODIUM MONOFLUOROPHOSPHATE
     Indication: PRODUCT USED FOR UNKNOWN INDICATION
     Route: 065
  4. PANTOPRAZOLE [Concomitant]
     Active Substance: PANTOPRAZOLE
  5. MIRTAZAPINE. [Concomitant]
     Active Substance: MIRTAZAPINE
  6. MIDODRINE [Concomitant]
     Active Substance: MIDODRINE
  7. PILOCARPINE. [Concomitant]
     Active Substance: PILOCARPINE
  8. FERROUS FUMARATE [Concomitant]
     Active Substance: FERROUS FUMARATE
     Route: 048
  9. TYLENOL [Concomitant]
     Active Substance: ACETAMINOPHEN
  10. XARELTO [Suspect]
     Active Substance: RIVAROXABAN
     Indication: PRODUCT USED FOR UNKNOWN INDICATION
     Route: 048
     Dates: end: 20200522
  11. FIRDAPSE [Suspect]
     Active Substance: AMIFAMPRIDINE PHOSPHATE
     Dates: start: 2019, end: 2019
  12. ZOSYN [Suspect]
     Active Substance: PIPERACILLIN SODIUM\TAZOBACTAM SODIUM
     Indication: PRODUCT USED FOR UNKNOWN INDICATION
     Route: 065
  13. FERROUS SULFATE. [Concomitant]
     Active Substance: FERROUS SULFATE
  14. TYLENOL [Concomitant]
     Active Substance: ACETAMINOPHEN
  15. DULCOLAX (BISACODYL) [Concomitant]
     Active Substance: BISACODYL
     Route: 048
  16. FIRDAPSE [Suspect]
     Active Substance: AMIFAMPRIDINE PHOSPHATE
     Dates: start: 2019, end: 2019
  17. BREO ELLIPTA [Concomitant]
     Active Substance: FLUTICASONE FUROATE\VILANTEROL TRIFENATATE
  18. FIRDAPSE [Suspect]
     Active Substance: AMIFAMPRIDINE PHOSPHATE
     Indication: MYASTHENIC SYNDROME
     Route: 065
     Dates: start: 20190208, end: 2019
  19. FIRDAPSE [Suspect]
     Active Substance: AMIFAMPRIDINE PHOSPHATE
     Dates: start: 2019, end: 2019
  20. FIRDAPSE [Suspect]
     Active Substance: AMIFAMPRIDINE PHOSPHATE

REACTIONS (35)
  - Acute kidney injury [Recovered/Resolved]
  - Anaemia [Unknown]
  - Pyuria [Unknown]
  - Renal cyst [Unknown]
  - Swollen tongue [Unknown]
  - Hypoxia [Unknown]
  - Nephrolithiasis [Unknown]
  - Vomiting [Unknown]
  - Dysarthria [Unknown]
  - Failure to thrive [Unknown]
  - Hypophosphataemia [Not Recovered/Not Resolved]
  - Pneumonia aspiration [Unknown]
  - Septic shock [Unknown]
  - Acute respiratory failure [Unknown]
  - Oropharyngeal pain [Unknown]
  - Appendicitis [Unknown]
  - Muscular weakness [Unknown]
  - Back pain [Recovered/Resolved]
  - Diarrhoea [Unknown]
  - Eosinophilia [Unknown]
  - Pneumonia [Recovered/Resolved]
  - Dehydration [Unknown]
  - Urinary tract infection [Recovered/Resolved]
  - Acute myocardial infarction [Unknown]
  - Thrombocytosis [Unknown]
  - Leukocytosis [Unknown]
  - Arthralgia [Recovered/Resolved]
  - Hyponatraemia [Unknown]
  - Sepsis [Recovered/Resolved]
  - Deep vein thrombosis [Unknown]
  - Pyrexia [Unknown]
  - Hypercalcaemia [Recovered/Resolved]
  - Hypomagnesaemia [Not Recovered/Not Resolved]
  - Fall [Unknown]
  - Faeces discoloured [Unknown]

NARRATIVE: CASE EVENT DATE: 201904
